FAERS Safety Report 12722694 (Version 1)
Quarter: 2016Q3

REPORT INFORMATION
  Report Type: Spontaneous
  Country: US (occurrence: US)
  Receive Date: 20160907
  Receipt Date: 20160907
  Transmission Date: 20161109
  Serious: Yes (Other)
  Sender: FDA-Public Use
  Company Number: US-LUNDBECK-DKLU2018719

PATIENT
  Sex: Male

DRUGS (1)
  1. NORTHERA [Suspect]
     Active Substance: DROXIDOPA
     Indication: AUTONOMIC NEUROPATHY
     Route: 048
     Dates: start: 20160813, end: 20160827

REACTIONS (6)
  - Loss of consciousness [Unknown]
  - Drug ineffective [Unknown]
  - Dyskinesia [Unknown]
  - Blood pressure decreased [Unknown]
  - Muscle twitching [Unknown]
  - Condition aggravated [Unknown]
